FAERS Safety Report 25482282 (Version 1)
Quarter: 2025Q2

REPORT INFORMATION
  Report Type: Spontaneous
  Country: US (occurrence: US)
  Receive Date: 20250626
  Receipt Date: 20250626
  Transmission Date: 20250717
  Serious: Yes (Death, Life-Threatening, Hospitalization, Other)
  Sender: AUROBINDO
  Company Number: US-MLMSERVICE-20250602-PI531795-00271-1

PATIENT
  Age: 67 Year
  Sex: Male

DRUGS (2)
  1. PREDNISONE [Suspect]
     Active Substance: PREDNISONE
     Indication: Undifferentiated connective tissue disease
     Route: 065
  2. HYDROXYCHLOROQUINE [Concomitant]
     Active Substance: HYDROXYCHLOROQUINE
     Indication: Undifferentiated connective tissue disease
     Route: 065

REACTIONS (6)
  - Septic shock [Fatal]
  - Abdominal abscess [Unknown]
  - Pneumoperitoneum [Unknown]
  - Large intestine perforation [Unknown]
  - Ileus [Unknown]
  - Hypotension [Unknown]
